FAERS Safety Report 7229071-4 (Version None)
Quarter: 2011Q1

REPORT INFORMATION
  Report Type: 
  Country: None (occurrence: None)
  Receive Date: 20110117
  Receipt Date: 20110113
  Transmission Date: 20110831
  Serious: Yes (Death, Hospitalization)
  Sender: FDA-Public Use
  Company Number: PHHY2010BE87333

PATIENT
  Age: 70 Year
  Sex: Male

DRUGS (3)
  1. EXELON [Suspect]
     Dosage: 4.6 MG, UNK
     Route: 062
     Dates: start: 20101101
  2. CAPTOPRIL [Concomitant]
     Dosage: UNK
  3. BISOPROLOL [Concomitant]
     Dosage: UNK

REACTIONS (7)
  - AGITATION [None]
  - PSYCHOTIC DISORDER [None]
  - PNEUMONIA ASPIRATION [None]
  - DELIRIUM [None]
  - HALLUCINATION [None]
  - DEMENTIA [None]
  - RESTLESSNESS [None]
